FAERS Safety Report 12472318 (Version 4)
Quarter: 2016Q3

REPORT INFORMATION
  Report Type: Spontaneous
  Country: US (occurrence: US)
  Receive Date: 20160616
  Receipt Date: 20160912
  Transmission Date: 20161109
  Serious: No
  Sender: FDA-Public Use
  Company Number: US-ACTELION-A-US2016-137213

PATIENT
  Age: 27 Year
  Sex: Male

DRUGS (2)
  1. PROTOPIC [Concomitant]
     Active Substance: TACROLIMUS
     Dosage: UNK, AS DIRECTED
  2. VALCHLOR [Suspect]
     Active Substance: MECHLORETHAMINE
     Indication: MYCOSIS FUNGOIDES
     Dosage: UNK, APPLY THIN FILM ONCE DAILY
     Route: 061
     Dates: start: 20160519

REACTIONS (7)
  - Pruritus [Unknown]
  - Disease progression [Unknown]
  - Application site erythema [Unknown]
  - Application site irritation [Unknown]
  - Erythema [Unknown]
  - Application site dryness [Unknown]
  - Application site pain [Unknown]
